FAERS Safety Report 8608244-X (Version None)
Quarter: 2012Q3

REPORT INFORMATION
  Report Type: 
  Country: None (occurrence: None)
  Receive Date: 20120821
  Receipt Date: 20120816
  Transmission Date: 20120928
  Serious: No
  Sender: FDA-Public Use
  Company Number: US-BAYER-2012-085501

PATIENT
  Sex: Female

DRUGS (1)
  1. CLIMARA [Suspect]
     Dosage: 0.1 MG, UNK

REACTIONS (3)
  - DRUG INEFFECTIVE [None]
  - NIGHT SWEATS [None]
  - HOT FLUSH [None]
